FAERS Safety Report 6994471-4 (Version None)
Quarter: 2010Q3

REPORT INFORMATION
  Report Type: 
  Country: None (occurrence: None)
  Receive Date: 20100917
  Receipt Date: 20100909
  Transmission Date: 20110219
  Serious: Yes (Hospitalization)
  Sender: FDA-Public Use
  Company Number: BR-JNJFOC-20100903602

PATIENT
  Sex: Female
  Weight: 13 kg

DRUGS (2)
  1. TYLENOL CRIANCA [Suspect]
     Route: 048
  2. TYLENOL CRIANCA [Suspect]
     Indication: PYREXIA
     Route: 048

REACTIONS (1)
  - HYPERSENSITIVITY [None]
